FAERS Safety Report 6602006-0 (Version None)
Quarter: 2010Q1

REPORT INFORMATION
  Report Type: 
  Country: None (occurrence: None)
  Receive Date: 20100225
  Receipt Date: 20100218
  Transmission Date: 20100710
  Serious: Yes (Other)
  Sender: FDA-Public Use
  Company Number: US-PFIZER INC-2010022708

PATIENT
  Sex: Female

DRUGS (5)
  1. CELEBREX [Suspect]
     Indication: OSTEOARTHRITIS
     Dates: start: 20080101
  2. LEVOTHYROXINE SODIUM [Concomitant]
     Dosage: 112 UG, UNK
  3. NEXIUM [Concomitant]
     Dosage: 40 MG, 2X/DAY
  4. CENTRUM SILVER [Concomitant]
     Dosage: UNK
  5. CALCIUM WITH VITAMIN D [Concomitant]
     Dosage: UNK

REACTIONS (5)
  - ARTHRITIS [None]
  - CARTILAGE INJURY [None]
  - CONSTIPATION [None]
  - GASTRIC BYPASS [None]
  - VITAMIN D DECREASED [None]
